FAERS Safety Report 9571864 (Version 2)
Quarter: 2013Q4

REPORT INFORMATION
  Report Type: Spontaneous
  Country: US (occurrence: US)
  Receive Date: 20131001
  Receipt Date: 20131011
  Transmission Date: 20140711
  Serious: Yes (Hospitalization, Other)
  Sender: FDA-Public Use
  Company Number: US-GILEAD-2013-0084285

PATIENT
  Sex: Male

DRUGS (4)
  1. LETAIRIS [Suspect]
     Indication: PULMONARY ARTERIAL HYPERTENSION
     Dosage: 10 MG, QD
     Route: 048
     Dates: start: 20120622
  2. ADCIRCA [Concomitant]
  3. COUMADIN                           /00014802/ [Concomitant]
  4. VELETRI [Concomitant]

REACTIONS (2)
  - Road traffic accident [Unknown]
  - Dizziness [Unknown]
